FAERS Safety Report 16848577 (Version 1)
Quarter: 2019Q4

REPORT INFORMATION
  Report Type: Spontaneous
  Country: US (occurrence: US)
  Receive Date: 20190924
  Receipt Date: 20190924
  Transmission Date: 20200122
  Serious: Yes (Life-Threatening, Hospitalization, Disabling)
  Sender: FDA-Public Use
  Company Number: None

PATIENT
  Age: 30 Year
  Sex: Female
  Weight: 72.57 kg

DRUGS (1)
  1. PARAGARD T 380A [Suspect]
     Active Substance: COPPER

REACTIONS (10)
  - Complication associated with device [None]
  - Migraine [None]
  - Cardiac disorder [None]
  - Palpitations [None]
  - Metal poisoning [None]
  - Blood copper increased [None]
  - Bedridden [None]
  - Candida infection [None]
  - Insomnia [None]
  - Heart rate irregular [None]

NARRATIVE: CASE EVENT DATE: 20190101
